FAERS Safety Report 8687520 (Version 3)
Quarter: 2013Q1

REPORT INFORMATION
  Report Type: Spontaneous
  Country: ES (occurrence: ES)
  Receive Date: 20120727
  Receipt Date: 20130118
  Transmission Date: 20140127
  Serious: Yes (Disabling, Other)
  Sender: FDA-Public Use
  Company Number: ES-PFIZER INC-2012163685

PATIENT
  Age: 37 Year
  Sex: Female
  Weight: 70 kg

DRUGS (2)
  1. DOSTINEX [Suspect]
     Indication: PROLACTINOMA
     Dosage: 1 TABLET AND A HALF, TWICE WEEKLY ON TUESDAY AND FRIDAY
     Dates: start: 201110, end: 201203
  2. DOSTINEX [Suspect]
     Dosage: 1 DF, 2X/WEEK
     Dates: start: 2012

REACTIONS (2)
  - Drug intolerance [Unknown]
  - Prolactinoma [Unknown]
